FAERS Safety Report 8012885-0 (Version None)
Quarter: 2011Q4

REPORT INFORMATION
  Report Type: 
  Country: None (occurrence: None)
  Receive Date: 20111223
  Receipt Date: 20111223
  Transmission Date: 20120403
  Serious: Yes (Life-Threatening, Hospitalization, Disabling, Other)
  Sender: FDA-Public Use
  Company Number: None

PATIENT
  Age: 30 Year
  Sex: Male
  Weight: 133.8111 kg

DRUGS (3)
  1. LORAZEPAM [Suspect]
     Indication: ANXIETY
     Dosage: 2 MG A DAY 047
     Route: 048
     Dates: start: 19960403, end: 19961109
  2. PERPHENAZINE [Concomitant]
  3. PAXIL [Concomitant]

REACTIONS (2)
  - PERSONALITY CHANGE [None]
  - DEPRESSED LEVEL OF CONSCIOUSNESS [None]
